FAERS Safety Report 12966666 (Version 1)
Quarter: 2016Q4

REPORT INFORMATION
  Report Type: Spontaneous
  Country: US (occurrence: US)
  Receive Date: 20161119
  Receipt Date: 20161119
  Transmission Date: 20170207
  Serious: No
  Sender: FDA-Public Use
  Company Number: None

PATIENT
  Age: 20 Year
  Sex: Female

DRUGS (1)
  1. VENLAFAXINE HCL ER-CAP 75MG ZYDUS [Suspect]
     Active Substance: VENLAFAXINE HYDROCHLORIDE
     Indication: DEPRESSION
     Route: 048
     Dates: start: 20161028, end: 20161107

REACTIONS (4)
  - Headache [None]
  - Eye disorder [None]
  - Mydriasis [None]
  - Dizziness [None]

NARRATIVE: CASE EVENT DATE: 20161104
